FAERS Safety Report 20046663 (Version 2)
Quarter: 2021Q4

REPORT INFORMATION
  Report Type: Report from Study
  Country: ES (occurrence: None)
  Receive Date: 20211109
  Receipt Date: 20211118
  Transmission Date: 20220303
  Serious: Yes (Hospitalization, Other)
  Sender: FDA-Public Use
  Company Number: ES-Merck Healthcare KGaA-9277004

PATIENT
  Sex: Female

DRUGS (1)
  1. REBIF [Suspect]
     Active Substance: INTERFERON BETA-1A
     Indication: Multiple sclerosis
     Route: 058
     Dates: start: 20100120

REACTIONS (6)
  - Thrombosis [Unknown]
  - Volvulus [Recovering/Resolving]
  - Injection site bruising [Unknown]
  - Constipation [Unknown]
  - Gastrointestinal disorder [Unknown]
  - Product administered at inappropriate site [Unknown]
